FAERS Safety Report 15885353 (Version 2)
Quarter: 2019Q1

REPORT INFORMATION
  Report Type: Spontaneous
  Country: JP (occurrence: JP)
  Receive Date: 20190129
  Receipt Date: 20190213
  Transmission Date: 20190417
  Serious: Yes (Other)
  Sender: FDA-Public Use
  Company Number: GXJP2019JP000481

PATIENT
  Age: 72 Year
  Sex: Female

DRUGS (11)
  1. PREDNISOLONE. [Concomitant]
     Active Substance: PREDNISOLONE
     Indication: ATYPICAL MYCOBACTERIAL INFECTION
     Dosage: 5 MG, QD
     Route: 065
  2. METHOTREXATE. [Concomitant]
     Active Substance: METHOTREXATE
     Indication: RHEUMATOID ARTHRITIS
  3. ETANERCEPT [Concomitant]
     Active Substance: ETANERCEPT
     Indication: RHEUMATOID ARTHRITIS
     Dosage: 50 MG, QW
     Route: 065
  4. ISONIAZID. [Suspect]
     Active Substance: ISONIAZID
     Indication: ATYPICAL MYCOBACTERIAL INFECTION
     Dosage: 300 MG/L, UNK
     Route: 065
     Dates: start: 201712
  5. METHOTREXATE. [Concomitant]
     Active Substance: METHOTREXATE
     Indication: ATYPICAL MYCOBACTERIAL INFECTION
     Dosage: 10 MG, QW
     Route: 065
  6. SALAZOSULFAPYRIDINE [Concomitant]
     Active Substance: SULFASALAZINE
     Indication: ATYPICAL MYCOBACTERIAL INFECTION
     Dosage: 1000 MG/M2, UNK
     Route: 065
  7. RIFAMPICIN [Suspect]
     Active Substance: RIFAMPIN
     Dosage: 450 MG/L, UNK
     Route: 048
  8. ETHAMBUTOL [Suspect]
     Active Substance: ETHAMBUTOL HYDROCHLORIDE
     Indication: ATYPICAL MYCOBACTERIAL INFECTION
     Dosage: 750 MG/L, UNK
     Route: 065
     Dates: start: 201712
  9. ISONIAZID. [Suspect]
     Active Substance: ISONIAZID
     Dosage: 200 MG/L, UNK
     Route: 065
  10. PREDNISOLONE. [Concomitant]
     Active Substance: PREDNISOLONE
     Indication: RHEUMATOID ARTHRITIS
  11. RIFAMPICIN [Suspect]
     Active Substance: RIFAMPIN
     Indication: ATYPICAL MYCOBACTERIAL INFECTION
     Dosage: 600 MG/L, UNK
     Route: 065
     Dates: start: 201712

REACTIONS (3)
  - Rheumatoid arthritis [Recovered/Resolved]
  - Hypermetabolism [Recovered/Resolved]
  - Hepatic enzyme increased [Recovered/Resolved]
